FAERS Safety Report 7003455-1 (Version None)
Quarter: 2010Q3

REPORT INFORMATION
  Report Type: 
  Country: None (occurrence: None)
  Receive Date: 20100920
  Receipt Date: 20100909
  Transmission Date: 20110219
  Serious: Yes (Hospitalization)
  Sender: FDA-Public Use
  Company Number: CH-AMGEN-QUU438100

PATIENT
  Sex: Male

DRUGS (2)
  1. ENBREL [Suspect]
     Indication: ANKYLOSING SPONDYLITIS
     Dosage: DOSAGE UNKNOWN
     Dates: start: 20050101, end: 20100101
  2. ENBREL [Suspect]
     Dosage: DOSAGE UNKNOWN
     Dates: start: 20100101

REACTIONS (1)
  - TRANSITIONAL CELL CARCINOMA [None]
